FAERS Safety Report 5550627-9 (Version None)
Quarter: 2007Q4

REPORT INFORMATION
  Report Type: 
  Country: None (occurrence: None)
  Receive Date: 20071210
  Receipt Date: 20071128
  Transmission Date: 20080405
  Serious: Yes (Hospitalization)
  Sender: FDA-Public Use
  Company Number: 2007BI002982

PATIENT
  Age: 49 Year
  Sex: Male
  Weight: 81.6475 kg

DRUGS (1)
  1. AVONEX [Suspect]
     Indication: MULTIPLE SCLEROSIS
     Dosage: 30 UG,QW,IM
     Route: 030
     Dates: start: 20031221

REACTIONS (6)
  - ARTHRITIS [None]
  - INFLUENZA LIKE ILLNESS [None]
  - INTERVERTEBRAL DISC DISORDER [None]
  - NERVE COMPRESSION [None]
  - PARALYSIS [None]
  - POST PROCEDURAL COMPLICATION [None]
